FAERS Safety Report 5225468-2 (Version None)
Quarter: 2007Q1

REPORT INFORMATION
  Report Type: 
  Country: None (occurrence: None)
  Receive Date: 20061201
  Receipt Date: 20060823
  Transmission Date: 20070707
  Serious: No
  Sender: FDA-Public Use
  Company Number: US200608004880

PATIENT
  Age: 54 Year
  Sex: Female

DRUGS (6)
  1. CYMBALTA [Suspect]
     Indication: DEPRESSION
     Dosage: 60 MG, 2/D, ORAL
     Route: 048
  2. PREMARIN [Concomitant]
  3. PAXIL (PAROXETINE HYDRCHLORIDE) [Concomitant]
  4. DESYREL [Concomitant]
  5. VICODIN [Concomitant]
  6. MORPHINE SULFATE (MORPHINE SULFATE UNKNOWN FORMULATION) [Concomitant]

REACTIONS (4)
  - DEPRESSION [None]
  - DRUG INEFFECTIVE [None]
  - PANIC ATTACK [None]
  - SUICIDAL IDEATION [None]
